FAERS Safety Report 9919439 (Version 2)
Quarter: 2014Q3

REPORT INFORMATION
  Report Type: Spontaneous
  Country: RU (occurrence: RU)
  Receive Date: 20140224
  Receipt Date: 20140717
  Transmission Date: 20150326
  Serious: Yes (Other)
  Sender: FDA-Public Use
  Company Number: RU-BAYER-2014-025455

PATIENT
  Age: 38 Year
  Sex: Female
  Weight: 65 kg

DRUGS (1)
  1. MIRENA [Suspect]
     Active Substance: LEVONORGESTREL
     Indication: CONTRACEPTION
     Dosage: 20 MCG/24HR, CONT
     Route: 015
     Dates: start: 2012

REACTIONS (4)
  - Cervical dysplasia [Recovered/Resolved]
  - Uterine enlargement [None]
  - Cervical cyst [Recovering/Resolving]
  - Hyperplasia [Recovered/Resolved]

NARRATIVE: CASE EVENT DATE: 201310
